FAERS Safety Report 12240076 (Version 1)
Quarter: 2016Q2

REPORT INFORMATION
  Report Type: Report from Study
  Country: US (occurrence: US)
  Receive Date: 20160405
  Receipt Date: 20160405
  Transmission Date: 20160815
  Serious: No
  Sender: FDA-Public Use
  Company Number: ADR-2014-02094

PATIENT
  Age: 43 Year
  Sex: Female

DRUGS (8)
  1. BUPIVACAINE. [Suspect]
     Active Substance: BUPIVACAINE
     Dosage: 9.321 MG/DAY
     Route: 037
  2. DILAUDID [Suspect]
     Active Substance: HYDROMORPHONE HYDROCHLORIDE
     Dosage: 174.77 MCG/DAY
     Route: 037
  3. COMPOUNDED BACLOFEN [Suspect]
     Active Substance: BACLOFEN
     Dosage: 77.67 MCG/DAY
     Route: 037
  4. DILAUDID [Suspect]
     Active Substance: HYDROMORPHONE HYDROCHLORIDE
     Dosage: 0.15535 MG/DAY
     Route: 037
  5. DILAUDID [Suspect]
     Active Substance: HYDROMORPHONE HYDROCHLORIDE
     Dosage: 0.17477 MG/DAY
     Route: 037
     Dates: start: 20140410
  6. CLONIDINE. [Suspect]
     Active Substance: CLONIDINE
     Dosage: 77.67 MCG/DAY
     Route: 037
  7. BUPIVACAINE. [Suspect]
     Active Substance: BUPIVACAINE
     Dosage: 10.3462 MG/DAY.
     Route: 037
  8. BUPIVACAINE. [Suspect]
     Active Substance: BUPIVACAINE
     Dosage: 10.486 MG/DAY
     Route: 037
     Dates: start: 20140410

REACTIONS (2)
  - Hypoaesthesia [Recovered/Resolved]
  - Hypoaesthesia oral [Recovered/Resolved]
